FAERS Safety Report 6939416-8 (Version None)
Quarter: 2010Q3

REPORT INFORMATION
  Report Type: 
  Country: None (occurrence: None)
  Receive Date: 20100819
  Receipt Date: 20100804
  Transmission Date: 20110219
  Serious: Yes (Life-Threatening)
  Sender: FDA-Public Use
  Company Number: 010354

PATIENT
  Age: 82 Year
  Sex: Female

DRUGS (18)
  1. PLETAL [Suspect]
     Indication: CEREBRAL INFARCTION
     Dosage: 100 MG, BID ORAL
     Route: 048
     Dates: start: 20100514, end: 20100707
  2. PLAVIX [Suspect]
     Indication: CEREBRAL INFARCTION
     Dosage: 75 MG, QD ORAL
     Route: 048
     Dates: start: 20100514, end: 20100704
  3. BAYASPIRIN (ACETYLSALCYLIC ACID) [Concomitant]
  4. CLARITH (CLARITHROMYCOM) [Concomitant]
  5. RADICUT (EDARAVONE) [Concomitant]
  6. NOVATAN HI (ARGATROBAN) [Concomitant]
  7. HEPARIN AND PREPARATIONS (HEPARIN AND PREPARATIONS) [Concomitant]
  8. MUCOSTA (REBAMIPIDE) [Concomitant]
  9. PANTOSIN (PANTETHINE) [Concomitant]
  10. MAGNESIUM OXIDE (MAGNESIUM OXIDE) [Concomitant]
  11. ATELEC (CILNIDIPINE) [Concomitant]
  12. ASPIRIN [Concomitant]
  13. NORVASC OD (AMLODIPINE BESILATE) [Concomitant]
  14. DIOVAN [Concomitant]
  15. KALGUT (DENOPAMINE) [Concomitant]
  16. LIPITOR [Concomitant]
  17. FAMOTIDINE [Concomitant]
  18. ONE-ALPHA (ALFACALCIDOL) [Concomitant]

REACTIONS (2)
  - BONE MARROW FAILURE [None]
  - CAROTID ARTERY STENT INSERTION [None]
